FAERS Safety Report 10538499 (Version 3)
Quarter: 2015Q1

REPORT INFORMATION
  Report Type: Spontaneous
  Country: US (occurrence: None)
  Receive Date: 20141021
  Receipt Date: 20150211
  Transmission Date: 20150720
  Serious: Yes (Other)
  Sender: FDA-Public Use
  Company Number: KAD201410-001259

PATIENT
  Age: 44 Year
  Sex: Female

DRUGS (4)
  1. VITAMIN D [Suspect]
     Active Substance: CHOLECALCIFEROL
     Indication: SUPPLEMENTATION THERAPY
  2. RIBAVIRIN (RIBAVIRIN) [Suspect]
     Active Substance: RIBAVIRIN
     Indication: HEPATITIS C
  3. PEGINTERFERON ALFA-2A [Suspect]
     Active Substance: PEGINTERFERON ALFA-2A
     Indication: HEPATITIS C
  4. SILIBININ [Suspect]
     Active Substance: SILIBININ
     Route: 042

REACTIONS (4)
  - Mental disorder [None]
  - Feeling hot [None]
  - Eosinophilia [None]
  - Haemoglobin decreased [None]
